FAERS Safety Report 4525855-1 (Version None)
Quarter: 2004Q4

REPORT INFORMATION
  Report Type: 
  Country: None (occurrence: None)
  Receive Date: 20041213
  Receipt Date: 20041119
  Transmission Date: 20050328
  Serious: Yes (Other)
  Sender: FDA-Public Use
  Company Number: JP-MERCK-0411USA04026

PATIENT
  Age: 50 Year
  Sex: Female

DRUGS (10)
  1. PEPCID [Suspect]
     Indication: PROPHYLAXIS AGAINST GASTROINTESTINAL ULCER
     Route: 042
     Dates: start: 20010519, end: 20010525
  2. TEGRETOL [Suspect]
     Indication: TRIGEMINAL NEURALGIA
     Route: 048
     Dates: start: 20010530
  3. FLUMARIN [Concomitant]
     Route: 042
     Dates: start: 20010519, end: 20010525
  4. PRIMPERAN [Concomitant]
     Route: 042
     Dates: start: 20010519, end: 20010525
  5. LOXONIN [Concomitant]
     Route: 048
     Dates: start: 20010520, end: 20010613
  6. DASEN [Concomitant]
     Route: 048
     Dates: start: 20010520, end: 20010613
  7. MUCOSTA [Concomitant]
     Route: 048
     Dates: start: 20010520, end: 20010613
  8. MERISLON [Concomitant]
     Route: 048
     Dates: start: 20010520, end: 20010613
  9. NAUZELIN [Concomitant]
     Route: 048
     Dates: start: 20010520, end: 20010613
  10. LUVOX [Concomitant]
     Route: 048
     Dates: start: 20010530

REACTIONS (1)
  - STEVENS-JOHNSON SYNDROME [None]
